FAERS Safety Report 5297529-3 (Version None)
Quarter: 2007Q2

REPORT INFORMATION
  Report Type: 
  Country: None (occurrence: None)
  Receive Date: 20070411
  Receipt Date: 20070411
  Transmission Date: 20071010
  Serious: No
  Sender: FDA-Public Use
  Company Number: None

PATIENT
  Sex: Female
  Weight: 14.9687 kg

DRUGS (1)
  1. LICE BE GONE [Suspect]

REACTIONS (1)
  - DRUG INEFFECTIVE [None]
